FAERS Safety Report 7825713-0 (Version None)
Quarter: 2011Q4

REPORT INFORMATION
  Report Type: 
  Country: None (occurrence: None)
  Receive Date: 20111019
  Receipt Date: 20110929
  Transmission Date: 20120403
  Serious: Yes (Other)
  Sender: FDA-Public Use
  Company Number: US-TEVA-302942USA

PATIENT
  Sex: Female

DRUGS (1)
  1. ALENDRONIC ACID [Suspect]
     Indication: OSTEOPENIA
     Dosage: 10 MILLIGRAM;
     Dates: start: 20090413, end: 20110926

REACTIONS (1)
  - OSTEOMYELITIS [None]
